FAERS Safety Report 5273453-7 (Version None)
Quarter: 2007Q1

REPORT INFORMATION
  Report Type: 
  Country: None (occurrence: None)
  Receive Date: 20061219
  Receipt Date: 20060919
  Transmission Date: 20070707
  Serious: Yes (Life-Threatening, Hospitalization)
  Sender: FDA-Public Use
  Company Number: US-JNJFOC-20051202743

PATIENT
  Age: 24 Year
  Sex: Female
  Weight: 79.3795 kg

DRUGS (4)
  1. ORTHO EVRA [Suspect]
     Indication: CONTRACEPTION
     Dosage: 1 DOSE(S), 3 IN 4 WEEIK; TRANSDERMAL
     Route: 062
     Dates: start: 20050601, end: 20050710
  2. TYLENOL W/ CODEINE NO. 3 [Concomitant]
  3. BUTALBITAL (BUTALBITAL) [Concomitant]
  4. ASPIRIN [Concomitant]

REACTIONS (3)
  - PROTEIN S DECREASED [None]
  - PULMONARY EMBOLISM [None]
  - VENOUS THROMBOSIS [None]
